FAERS Safety Report 6977490-3 (Version None)
Quarter: 2010Q3

REPORT INFORMATION
  Report Type: 
  Country: None (occurrence: None)
  Receive Date: 20100910
  Receipt Date: 20100831
  Transmission Date: 20110219
  Serious: Yes (Hospitalization)
  Sender: FDA-Public Use
  Company Number: FR-WATSON-2010-11795

PATIENT
  Age: 14 Year
  Sex: Female

DRUGS (2)
  1. LOXAPINE (WATSON LABORATORIES) [Suspect]
     Indication: PSYCHOTIC DISORDER
     Dosage: 150 MG, DAILY
     Dates: start: 19980101
  2. HALOPERIDOL (WATSON LABORATORIES) [Suspect]
     Indication: PSYCHOTIC DISORDER
     Dosage: 30 MG, DAILY
     Dates: start: 19980101

REACTIONS (1)
  - CATATONIA [None]
